FAERS Safety Report 20171343 (Version 1)
Quarter: 2021Q4

REPORT INFORMATION
  Report Type: Spontaneous
  Country: US (occurrence: US)
  Receive Date: 20211210
  Receipt Date: 20211210
  Transmission Date: 20220303
  Serious: Yes (Other)
  Sender: FDA-Public Use
  Company Number: US-TEVA-2021-US-1985353

PATIENT
  Sex: Male

DRUGS (1)
  1. MESALAMINE [Suspect]
     Active Substance: MESALAMINE
     Indication: Proctitis ulcerative
     Dosage: RECTAL
     Route: 054
     Dates: start: 2020

REACTIONS (4)
  - Rectal haemorrhage [Unknown]
  - Rectal ulcer [Unknown]
  - Gastrointestinal tract irritation [Unknown]
  - Drug ineffective [Unknown]
